FAERS Safety Report 26167775 (Version 1)
Quarter: 2025Q4

REPORT INFORMATION
  Report Type: Spontaneous
  Country: EU (occurrence: EU)
  Receive Date: 20251217
  Receipt Date: 20251217
  Transmission Date: 20260117
  Serious: Yes (Death, Hospitalization)
  Sender: MACLEODS
  Company Number: EU-MLMSERVICE-20251203-PI735955-00291-2

PATIENT

DRUGS (2)
  1. ROSUVASTATIN [Suspect]
     Active Substance: ROSUVASTATIN
     Indication: Product used for unknown indication
     Dosage: 10MG/DIE
     Route: 065
  2. TICAGRELOR [Suspect]
     Active Substance: TICAGRELOR
     Indication: Product used for unknown indication
     Dosage: 90MG BID
     Route: 065

REACTIONS (5)
  - Cardiac arrest [Fatal]
  - Bradycardia [Fatal]
  - Liver injury [Unknown]
  - Acute kidney injury [Unknown]
  - Rhabdomyolysis [Unknown]
